FAERS Safety Report 5219459-5 (Version None)
Quarter: 2007Q1

REPORT INFORMATION
  Report Type: 
  Country: None (occurrence: None)
  Receive Date: 20061201
  Receipt Date: 20060722
  Transmission Date: 20070707
  Serious: No
  Sender: FDA-Public Use
  Company Number: 2006PV018020

PATIENT
  Age: 56 Year
  Sex: Female
  Weight: 118.8424 kg

DRUGS (5)
  1. BYETTA [Suspect]
     Indication: DIABETES MELLITUS NON-INSULIN-DEPENDENT
     Dosage: 5 MCG;BID;SC
     Route: 058
     Dates: start: 20060717
  2. AVANDIA [Concomitant]
  3. AMARYL [Concomitant]
  4. METFORMIN HCL [Concomitant]
  5. METFORMIN HCL [Concomitant]

REACTIONS (6)
  - DECREASED APPETITE [None]
  - DIARRHOEA [None]
  - DIZZINESS [None]
  - DRUG EFFECT DECREASED [None]
  - SOCIAL AVOIDANT BEHAVIOUR [None]
  - VOMITING [None]
